FAERS Safety Report 8949627 (Version 1)
Quarter: 2012Q4

REPORT INFORMATION
  Report Type: 
  Country: US (occurrence: US)
  Receive Date: 20121206
  Receipt Date: 20121206
  Transmission Date: 20130627
  Serious: Yes (Other)
  Sender: FDA-Public Use
  Company Number: US-VERTEX PHARMACEUTICALS INC.-2012-025563

PATIENT
  Sex: Male

DRUGS (8)
  1. VX-950 (TELAPREVIR) [Suspect]
     Indication: HEPATITIS C
     Dosage: UNK, UNK
     Route: 048
     Dates: start: 201203
  2. PEGASYS [Suspect]
     Indication: HEPATITIS C
     Dosage: 180 ?g, UNK
     Route: 058
     Dates: start: 201203
  3. RIBASPHERE [Suspect]
     Indication: HEPATITIS C
     Dosage: 200 mg, UNK
     Dates: start: 201203
  4. NEXIUM                             /01479302/ [Concomitant]
     Dosage: 40 mg, qd
  5. PROZAC [Concomitant]
     Dosage: 40 mg, qd
  6. FISH OIL [Concomitant]
     Dosage: 1200 mg, qd
  7. LORTAB                             /00607101/ [Concomitant]
  8. ASPIRIN [Concomitant]
     Dosage: 81 mg, UNK

REACTIONS (1)
  - Hepatic cancer [Unknown]
